FAERS Safety Report 6371930-9 (Version None)
Quarter: 2009Q3

REPORT INFORMATION
  Report Type: 
  Country: None (occurrence: None)
  Receive Date: 20090923
  Receipt Date: 20090911
  Transmission Date: 20100115
  Serious: Yes (Other)
  Sender: FDA-Public Use
  Company Number: GB-ELI_LILLY_AND_COMPANY-GB200909002536

PATIENT
  Age: 8 Year
  Sex: Female
  Weight: 24 kg

DRUGS (6)
  1. STRATTERA [Suspect]
     Indication: ATTENTION DEFICIT/HYPERACTIVITY DISORDER
     Dosage: 40 MG, UNKNOWN
     Route: 048
     Dates: start: 20090313, end: 20090630
  2. STRATTERA [Suspect]
     Dosage: UNK, UNKNOWN
     Route: 048
     Dates: start: 20090630, end: 20090710
  3. EQUASYM [Concomitant]
     Indication: ATTENTION DEFICIT/HYPERACTIVITY DISORDER
     Dosage: 10 MG, DAILY (1/D)
     Route: 048
     Dates: start: 20080318, end: 20080101
  4. EQUASYM [Concomitant]
     Dosage: 30 MG, DAILY (1/D)
     Route: 048
     Dates: start: 20081230
  5. MELATONIN [Concomitant]
     Dosage: 5 MG, UNKNOWN
     Route: 048
     Dates: start: 20081201
  6. RISPERIDONE [Concomitant]
     Indication: ANXIETY
     Dosage: 0.25, UNK
     Route: 048
     Dates: start: 20090630

REACTIONS (2)
  - ANXIETY [None]
  - SOCIAL PHOBIA [None]
